FAERS Safety Report 5310635-X (Version None)
Quarter: 2007Q1

REPORT INFORMATION
  Report Type: 
  Country: None (occurrence: None)
  Receive Date: 20070201
  Receipt Date: 20061017
  Transmission Date: 20070707
  Serious: No
  Sender: FDA-Public Use
  Company Number: 258266

PATIENT
  Age: 70 Year
  Sex: Male
  Weight: 97.5 kg

DRUGS (2)
  1. LEVEMIR [Suspect]
     Indication: INSULIN-REQUIRING TYPE II DIABETES MELLITUS
     Dosage: SLIDING SCLAE, QD, SUBCUTANEOUS
     Route: 058
     Dates: start: 20061003
  2. ACTOS /01460201/ (PIOGLITAZONE) [Concomitant]

REACTIONS (1)
  - DIZZINESS [None]
